FAERS Safety Report 7004886-6 (Version None)
Quarter: 2010Q3

REPORT INFORMATION
  Report Type: 
  Country: None (occurrence: None)
  Receive Date: 20100921
  Receipt Date: 20100907
  Transmission Date: 20110219
  Serious: Yes (Hospitalization, Other)
  Sender: FDA-Public Use
  Company Number: US-SANOFI-AVENTIS-2010SA054692

PATIENT
  Age: 53 Year
  Sex: Male
  Weight: 66.6 kg

DRUGS (8)
  1. PLAVIX [Suspect]
     Route: 048
     Dates: start: 20000821, end: 20091201
  2. PLAVIX [Suspect]
     Route: 048
     Dates: start: 20100825
  3. VALIUM [Concomitant]
  4. KLONOPIN [Concomitant]
  5. CRESTOR [Concomitant]
  6. FISH OIL [Concomitant]
  7. NITROGLYCERIN [Concomitant]
  8. CORADOL [Concomitant]

REACTIONS (8)
  - BLOOD PRESSURE INCREASED [None]
  - CAROTID ARTERY OCCLUSION [None]
  - CONDITION AGGRAVATED [None]
  - CORONARY ARTERY OCCLUSION [None]
  - DEVICE OCCLUSION [None]
  - LOSS OF CONSCIOUSNESS [None]
  - MYOCARDIAL INFARCTION [None]
  - PERIPHERAL ARTERIAL OCCLUSIVE DISEASE [None]
